FAERS Safety Report 22535543 (Version 1)
Quarter: 2023Q2

REPORT INFORMATION
  Report Type: Spontaneous
  Country: US (occurrence: None)
  Receive Date: 20230607
  Receipt Date: 20230607
  Transmission Date: 20230722
  Serious: Yes (Life-Threatening, Hospitalization, Disabling)
  Sender: FDA-Public Use
  Company Number: None

PATIENT
  Age: 62 Year
  Sex: Female
  Weight: 101 kg

DRUGS (2)
  1. WARFARIN [Suspect]
     Active Substance: WARFARIN
     Indication: Anticoagulant therapy
     Dosage: FREQUENCY : DAILY;?
     Route: 048
     Dates: start: 20211207, end: 20230521
  2. HEPARIN [Suspect]
     Active Substance: HEPARIN SODIUM
     Indication: Anticoagulant therapy
     Dosage: OTHER FREQUENCY : CONTINUOUS DRIP;?
     Route: 041
     Dates: start: 20230523, end: 20230527

REACTIONS (8)
  - Subdural haematoma [None]
  - Mental status changes [None]
  - Subdural haematoma evacuation [None]
  - Haemorrhage intracranial [None]
  - Extradural haematoma [None]
  - International normalised ratio increased [None]
  - Prothrombin level increased [None]
  - Activated partial thromboplastin time prolonged [None]

NARRATIVE: CASE EVENT DATE: 20230521
